FAERS Safety Report 13304754 (Version 2)
Quarter: 2017Q2

REPORT INFORMATION
  Report Type: Spontaneous
  Country: DK (occurrence: DK)
  Receive Date: 20170308
  Receipt Date: 20170403
  Transmission Date: 20170830
  Serious: Yes (Other)
  Sender: FDA-Public Use
  Company Number: DK-ROCHE-1903768

PATIENT
  Age: 60 Year
  Sex: Female
  Weight: 58 kg

DRUGS (1)
  1. XOLAIR [Suspect]
     Active Substance: OMALIZUMAB
     Indication: URTICARIA CHRONIC
     Dosage: UNK UNK, QMO
     Route: 058
     Dates: start: 20160111

REACTIONS (1)
  - Diphyllobothriasis [Recovered/Resolved]

NARRATIVE: CASE EVENT DATE: 20160601
